FAERS Safety Report 4681577-8 (Version None)
Quarter: 2005Q2

REPORT INFORMATION
  Report Type: 
  Country: None (occurrence: None)
  Receive Date: 20050602
  Receipt Date: 20050516
  Transmission Date: 20051028
  Serious: Yes (Hospitalization)
  Sender: FDA-Public Use
  Company Number: USA050597087

PATIENT
  Age: 55 Year
  Sex: Female
  Weight: 70.7611 kg

DRUGS (15)
  1. CYMBALTA [Suspect]
     Indication: DEPRESSION
     Dosage: 60 MG
     Dates: start: 20050308, end: 20050414
  2. REGLAN [Concomitant]
  3. ZOCOR [Concomitant]
  4. WELLBUTRIN [Concomitant]
  5. APO-METOPROLOL (METOPROLOL TARTRATE) [Concomitant]
  6. IMDUR [Concomitant]
  7. LANTUS [Concomitant]
  8. HUMALOG [Concomitant]
  9. FENTANYL [Concomitant]
  10. PREVACID [Concomitant]
  11. SYNTHROID [Concomitant]
  12. ATIVAN [Concomitant]
  13. SENOKOT (SENNA ALEXANDRINA) [Concomitant]
  14. NOVOLOG [Concomitant]
  15. LIDOCAINE [Concomitant]

REACTIONS (9)
  - ANXIETY [None]
  - ASTHENIA [None]
  - DIPLOPIA [None]
  - FEAR [None]
  - HALLUCINATION, AUDITORY [None]
  - HEADACHE [None]
  - PARAESTHESIA [None]
  - TINNITUS [None]
  - TREMOR [None]
